FAERS Safety Report 11828318 (Version 1)
Quarter: 2015Q4

REPORT INFORMATION
  Report Type: Spontaneous
  Country: US (occurrence: US)
  Receive Date: 20151211
  Receipt Date: 20151211
  Transmission Date: 20160305
  Serious: Yes (Death, Congenital Anomaly)
  Sender: FDA-Public Use
  Company Number: US-PFIZER INC-9505762

PATIENT
  Sex: Female

DRUGS (1)
  1. FLUCONAZOLE. [Suspect]
     Active Substance: FLUCONAZOLE
     Indication: MENINGITIS COCCIDIOIDES
     Dosage: 400 MG, DAILY
     Route: 064

REACTIONS (13)
  - Congenital epiglottal anomaly [Unknown]
  - Rib deformity [Unknown]
  - Tracheomalacia [Fatal]
  - Maternal exposure during pregnancy [Fatal]
  - Exophthalmos [Unknown]
  - Cleft palate [Unknown]
  - Congenital foot malformation [Unknown]
  - Ventricular septal defect [Unknown]
  - Clavicle fracture [Unknown]
  - Ear malformation [Unknown]
  - Congenital bowing of long bones [Unknown]
  - Arachnodactyly [Unknown]
  - Pulmonary vascular disorder [Unknown]
